FAERS Safety Report 14552985 (Version 16)
Quarter: 2019Q4

REPORT INFORMATION
  Report Type: Spontaneous
  Country: CA (occurrence: CA)
  Receive Date: 20180220
  Receipt Date: 20191204
  Transmission Date: 20200122
  Serious: Yes (Other)
  Sender: FDA-Public Use
  Company Number: CA-CELLTRION INC.-2017CA013846

PATIENT

DRUGS (12)
  1. INFLECTRA [Suspect]
     Active Substance: INFLIXIMAB-DYYB
     Dosage: 600 MG, (EVERY 4 WEEKS)
     Route: 042
     Dates: start: 20180910
  2. INFLECTRA [Suspect]
     Active Substance: INFLIXIMAB-DYYB
     Dosage: 600 MG, (EVERY 4 WEEKS)
     Route: 042
     Dates: start: 20190428
  3. INFLECTRA [Suspect]
     Active Substance: INFLIXIMAB-DYYB
     Dosage: 500 MG, (THEN EVERY 4 WEEKS)
     Route: 042
     Dates: start: 20180423
  4. MEZAVANT [Concomitant]
     Active Substance: MESALAMINE
     Dosage: 2.4 G AND TAPERING TO 2 TABLETS DAILY
     Route: 048
  5. INFLECTRA [Suspect]
     Active Substance: INFLIXIMAB-DYYB
     Dosage: 500 MG, (THEN EVERY 8 WEEKS)
     Route: 042
     Dates: start: 20180326, end: 20180326
  6. INFLECTRA [Suspect]
     Active Substance: INFLIXIMAB-DYYB
     Dosage: 500 MG, (EVERY 4 WEEKS)
     Route: 042
     Dates: start: 20180716, end: 20180716
  7. INFLECTRA [Suspect]
     Active Substance: INFLIXIMAB-DYYB
     Indication: COLITIS ULCERATIVE
     Dosage: 500 MG, (EVERY 0,2,6 WEEKS, THEN EVERY 8 WEEKS)
     Route: 042
     Dates: start: 20170828, end: 20171009
  8. INFLECTRA [Suspect]
     Active Substance: INFLIXIMAB-DYYB
     Dosage: 500 MG, (EVERY 0,2,6 WEEKS, THEN EVERY 8 WEEKS)
     Route: 042
     Dates: start: 20180203
  9. INFLECTRA [Suspect]
     Active Substance: INFLIXIMAB-DYYB
     Dosage: 600 MG, (EVERY 4 WEEKS)
     Route: 042
     Dates: start: 20180812
  10. INFLECTRA [Suspect]
     Active Substance: INFLIXIMAB-DYYB
     Dosage: 600 MG, (EVERY 4 WEEKS)
     Route: 042
     Dates: start: 20190528
  11. INFLECTRA [Suspect]
     Active Substance: INFLIXIMAB-DYYB
     Dosage: 600 MG, (EVERY 4 WEEKS)
     Route: 042
     Dates: start: 20190727
  12. INFLECTRA [Suspect]
     Active Substance: INFLIXIMAB-DYYB
     Dosage: 600 MG,  (EVERY 4 WEEKS)
     Route: 042
     Dates: start: 20190919

REACTIONS (13)
  - Pain [Unknown]
  - Malaise [Unknown]
  - Faecal calprotectin increased [Recovered/Resolved]
  - Weight increased [Unknown]
  - Weight decreased [Unknown]
  - Product use issue [Unknown]
  - Inappropriate schedule of product administration [Unknown]
  - Arthritis [Recovered/Resolved]
  - Condition aggravated [Not Recovered/Not Resolved]
  - Body temperature fluctuation [Unknown]
  - Off label use [Unknown]
  - Uveitis [Unknown]
  - Heart rate irregular [Unknown]

NARRATIVE: CASE EVENT DATE: 20180203
